FAERS Safety Report 5894471-1 (Version None)
Quarter: 2008Q3

REPORT INFORMATION
  Report Type: 
  Country: None (occurrence: None)
  Receive Date: 20080923
  Receipt Date: 20080923
  Transmission Date: 20090109
  Serious: Yes (Hospitalization)
  Sender: FDA-Public Use
  Company Number: None

PATIENT
  Age: 41 Year
  Sex: Female
  Weight: 65.6 kg

DRUGS (5)
  1. INFERGEN [Suspect]
     Indication: HEPATITIS C
     Dosage: 15 MCG QD SQ
     Route: 058
     Dates: start: 20080816
  2. FERROUS SULFATE TAB [Concomitant]
  3. ZYPREXA [Concomitant]
  4. LITHIUM CARBONATE [Concomitant]
  5. RIBAVIRIN [Concomitant]

REACTIONS (2)
  - ABDOMINAL PAIN [None]
  - LEUKOPENIA [None]
